FAERS Safety Report 11511146 (Version 3)
Quarter: 2015Q4

REPORT INFORMATION
  Report Type: Spontaneous
  Country: FR (occurrence: FR)
  Receive Date: 20150915
  Receipt Date: 20151030
  Transmission Date: 20160304
  Serious: Yes (Death, Life-Threatening, Hospitalization)
  Sender: FDA-Public Use
  Company Number: FR-009507513-1509FRA006857

PATIENT
  Age: 82 Year
  Sex: Male
  Weight: 70 kg

DRUGS (8)
  1. UROREC [Concomitant]
     Active Substance: SILODOSIN
     Route: 065
  2. SYMBICORT [Concomitant]
     Active Substance: BUDESONIDE\FORMOTEROL FUMARATE DIHYDRATE
     Dosage: INHALATION POWDER, HARD CAPSULE, 400/12, MICORGRAM
     Route: 055
  3. DUPHALAC [Concomitant]
     Active Substance: LACTULOSE
     Route: 065
  4. KARDEGIC [Concomitant]
     Active Substance: ASPIRIN LYSINE
     Route: 065
  5. VESICARE [Concomitant]
     Active Substance: SOLIFENACIN SUCCINATE
  6. ALTEIS [Concomitant]
     Active Substance: OLMESARTAN MEDOXOMIL
     Route: 065
  7. DAPTOMYCIN. [Suspect]
     Active Substance: DAPTOMYCIN
     Indication: DEVICE RELATED INFECTION
     Dosage: 500 MG, QD
     Route: 042
     Dates: start: 20150727, end: 20150908
  8. DAFALGAN [Concomitant]
     Active Substance: ACETAMINOPHEN
     Route: 065

REACTIONS (12)
  - Rales [Unknown]
  - Hyperthermia [Unknown]
  - Dyspnoea [Unknown]
  - Lung disorder [Unknown]
  - Cough [Unknown]
  - Hypoxia [Unknown]
  - Pneumonia [Unknown]
  - Inflammation [Unknown]
  - Tachypnoea [Unknown]
  - Off label use [Unknown]
  - Eosinophilic pneumonia acute [Fatal]
  - Respiratory distress [Unknown]

NARRATIVE: CASE EVENT DATE: 2015
